FAERS Safety Report 6412835-4 (Version None)
Quarter: 2009Q4

REPORT INFORMATION
  Report Type: 
  Country: None (occurrence: None)
  Receive Date: 20091023
  Receipt Date: 20091012
  Transmission Date: 20100525
  Serious: Yes (Disabling, Other)
  Sender: FDA-Public Use
  Company Number: US-ELI_LILLY_AND_COMPANY-US200910002892

PATIENT
  Age: 40 Year
  Sex: Female
  Weight: 63.492 kg

DRUGS (6)
  1. CYMBALTA [Suspect]
     Dosage: 1 D/F, UNK
     Dates: start: 20090101, end: 20090101
  2. LYRICA [Concomitant]
     Indication: FIBROMYALGIA
     Dosage: 75 MG, 2/D
     Dates: start: 20070101
  3. LYRICA [Concomitant]
     Dosage: 300 MG, EACH EVENING
     Dates: start: 20070101
  4. PREMARIN [Concomitant]
  5. PROVIGIL [Concomitant]
  6. PROZAC [Concomitant]
     Dosage: 1 D/F, UNK

REACTIONS (6)
  - BLISTER [None]
  - FIBROMYALGIA [None]
  - HYPERHIDROSIS [None]
  - HYPERSENSITIVITY [None]
  - HYSTERECTOMY [None]
  - INSOMNIA [None]
